FAERS Safety Report 8176632-4 (Version None)
Quarter: 2012Q1

REPORT INFORMATION
  Report Type: 
  Country: None (occurrence: None)
  Receive Date: 20120228
  Receipt Date: 20120213
  Transmission Date: 20120608
  Serious: Yes (Hospitalization)
  Sender: FDA-Public Use
  Company Number: A0965715A

PATIENT
  Age: 60 Year
  Sex: Female

DRUGS (1)
  1. TRANYLCYPROMINE SULFATE [Suspect]
     Indication: MAJOR DEPRESSION
     Dosage: 60 MG/PER DAY / ORAL
     Route: 048
     Dates: start: 20060101

REACTIONS (5)
  - DEPRESSION [None]
  - ANXIETY [None]
  - CONDITION AGGRAVATED [None]
  - PRODUCT SUBSTITUTION ISSUE [None]
  - DRUG INEFFECTIVE [None]
